FAERS Safety Report 25648247 (Version 1)
Quarter: 2025Q3

REPORT INFORMATION
  Report Type: Spontaneous
  Country: US (occurrence: US)
  Receive Date: 20250806
  Receipt Date: 20250806
  Transmission Date: 20251020
  Serious: No
  Sender: MERCK SHARP & DOHME LLC
  Company Number: US-009507513-2316150

PATIENT
  Age: 73 Year

DRUGS (3)
  1. PEMBROLIZUMAB [Suspect]
     Active Substance: PEMBROLIZUMAB
     Indication: Urethral cancer
  2. CISPLATIN [Concomitant]
     Active Substance: CISPLATIN
     Indication: Urethral cancer
  3. PACLITAXEL [Concomitant]
     Active Substance: PACLITAXEL
     Indication: Urethral cancer

REACTIONS (1)
  - Product use issue [Unknown]
